FAERS Safety Report 4724606-5 (Version None)
Quarter: 2005Q3

REPORT INFORMATION
  Report Type: 
  Country: None (occurrence: None)
  Receive Date: 20050719
  Receipt Date: 20050719
  Transmission Date: 20060218
  Serious: Yes (Disabling)
  Sender: FDA-Public Use
  Company Number: None

PATIENT
  Age: 64 Year
  Sex: Male

DRUGS (12)
  1. SIMVASTATIN [Suspect]
     Indication: BLOOD CHOLESTEROL INCREASED
     Dosage: 20MG PO   QHS
     Route: 048
     Dates: start: 20040301, end: 20050302
  2. GATIFLOXACIN [Concomitant]
  3. GLYBURIDE [Concomitant]
  4. HYDROCHLOROTHIAZIDE [Concomitant]
  5. HYDROXYZINE HCL [Concomitant]
  6. IBUPROFEN [Concomitant]
  7. IRBESARTAN [Concomitant]
  8. METFORMIN HCL [Concomitant]
  9. OXYCODONE + ACETAMIN. [Concomitant]
  10. RANITIDINE HCL [Concomitant]
  11. ROSIGLITAZONE [Concomitant]
  12. SIMVASTATIN [Concomitant]

REACTIONS (2)
  - MYALGIA [None]
  - MYOSITIS [None]
